FAERS Safety Report 15821554 (Version 1)
Quarter: 2019Q1

REPORT INFORMATION
  Report Type: Spontaneous
  Country: US (occurrence: US)
  Receive Date: 20190114
  Receipt Date: 20190114
  Transmission Date: 20190417
  Serious: No
  Sender: FDA-Public Use
  Company Number: US-PFIZER INC-2019014470

PATIENT
  Age: 69 Year
  Sex: Female
  Weight: 79 kg

DRUGS (7)
  1. SYNTHROID [Concomitant]
     Active Substance: LEVOTHYROXINE SODIUM
     Indication: THYROID DISORDER
     Dosage: UNK
     Dates: start: 1965
  2. NEOSAR [Concomitant]
     Active Substance: CYCLOPHOSPHAMIDE
     Indication: BREAST CANCER
  3. DOXIL [PEGYLATED LIPOSOMAL DOXORUBICIN HYDROCHLORIDE] [Concomitant]
     Indication: BREAST CANCER
  4. PREMARIN [Concomitant]
     Active Substance: ESTROGENS, CONJUGATED
     Indication: THYROID DISORDER
     Dosage: UNK
     Dates: start: 1977, end: 2008
  5. DOCETAXEL. [Suspect]
     Active Substance: DOCETAXEL
  6. ADRIAMYCIN [DOXORUBICIN HYDROCHLORIDE] [Concomitant]
     Indication: BREAST CANCER
  7. TAXOL [Concomitant]
     Active Substance: PACLITAXEL
     Indication: BREAST CANCER

REACTIONS (5)
  - Hair disorder [Not Recovered/Not Resolved]
  - Alopecia [Not Recovered/Not Resolved]
  - Hair texture abnormal [Not Recovered/Not Resolved]
  - Hair colour changes [Not Recovered/Not Resolved]
  - Madarosis [Not Recovered/Not Resolved]

NARRATIVE: CASE EVENT DATE: 200808
